FAERS Safety Report 6645109-7 (Version None)
Quarter: 2010Q1

REPORT INFORMATION
  Report Type: 
  Country: None (occurrence: None)
  Receive Date: 20100322
  Receipt Date: 20100310
  Transmission Date: 20100710
  Serious: Yes (Death, Other)
  Sender: FDA-Public Use
  Company Number: US-PFIZER INC-2010032026

PATIENT
  Sex: Male

DRUGS (3)
  1. SOMAVERT [Suspect]
     Indication: ACROMEGALY
     Dosage: 15 MG, UNK
     Dates: start: 20050101
  2. SYNTHROID [Concomitant]
     Dosage: UNK
  3. HYDROCORTISONE [Concomitant]
     Dosage: UNK

REACTIONS (3)
  - BLOOD GROWTH HORMONE INCREASED [None]
  - DEATH [None]
  - HYPERTENSION [None]
